FAERS Safety Report 9188357 (Version 1)
Quarter: 2013Q1

REPORT INFORMATION
  Report Type: Report from Study
  Country: DE (occurrence: DE)
  Receive Date: 20130325
  Receipt Date: 20130325
  Transmission Date: 20140127
  Serious: Yes (Death, Hospitalization)
  Sender: FDA-Public Use
  Company Number: DE-ROCHE-1205452

PATIENT
  Age: 65 Year
  Sex: Female
  Weight: 46 kg

DRUGS (3)
  1. BEVACIZUMAB [Suspect]
     Indication: OVARIAN CANCER
     Dosage: LAST DOSE PRIOR TO SAE ON 15/MAY/2012
     Route: 042
     Dates: start: 20120321
  2. CARBOPLATIN [Suspect]
     Indication: OVARIAN CANCER
     Dosage: LAST DOSE PRIOR TO SAE ON 15/MAY/2012
     Route: 042
     Dates: start: 20120227
  3. PACLITAXEL [Suspect]
     Indication: OVARIAN CANCER
     Dosage: LAST DOSE PRIOR TO SAE ON 15/MAY/2012
     Route: 042
     Dates: start: 20120227

REACTIONS (2)
  - Cachexia [Not Recovered/Not Resolved]
  - Death [Fatal]
